FAERS Safety Report 8044246-2 (Version None)
Quarter: 2011Q4

REPORT INFORMATION
  Report Type: 
  Country: None (occurrence: None)
  Receive Date: 20111202
  Receipt Date: 20110125
  Transmission Date: 20120403
  Serious: Yes (Other)
  Sender: FDA-Public Use
  Company Number: WAES 0907USA05804

PATIENT
  Age: 63 Year
  Sex: Female
  Weight: 53.978 kg

DRUGS (5)
  1. FOSAMAX [Suspect]
     Indication: OSTEOPOROSIS
     Dosage: 70 MG/WKY/PO, 70 MG/WKY/PO, 70 MG/WKY/PO
     Route: 048
     Dates: start: 20060516, end: 20060801
  2. FOSAMAX [Suspect]
     Indication: OSTEOPOROSIS
     Dosage: 70 MG/WKY/PO, 70 MG/WKY/PO, 70 MG/WKY/PO
     Route: 048
     Dates: start: 20040101, end: 20080814
  3. FOSAMAX [Suspect]
     Indication: OSTEOPOROSIS
     Dosage: 70 MG/WKY/PO, 70 MG/WKY/PO, 70 MG/WKY/PO
     Route: 048
     Dates: end: 20080814
  4. ACTONEL [Suspect]
     Indication: OSTEOPOROSIS
     Dosage: 35 MG/WKY/PO
     Route: 048
     Dates: start: 20030403, end: 20060410
  5. ESTRADERM [Concomitant]

REACTIONS (36)
  - BLOOD PRESSURE INCREASED [None]
  - OSTEOPENIA [None]
  - GASTROOESOPHAGEAL REFLUX DISEASE [None]
  - ANXIETY [None]
  - MUSCULOSKELETAL PAIN [None]
  - HYPERTENSION [None]
  - IMPAIRED HEALING [None]
  - BREAST CYST [None]
  - BRONCHITIS [None]
  - DEPRESSION [None]
  - VARICOSE VEIN [None]
  - GINGIVAL INFECTION [None]
  - CHOLECYSTITIS [None]
  - STRESS [None]
  - ORAL INFECTION [None]
  - ORAL NEOPLASM BENIGN [None]
  - DECREASED APPETITE [None]
  - MOUTH HAEMORRHAGE [None]
  - MOUTH ULCERATION [None]
  - GINGIVAL DISORDER [None]
  - CHEST PAIN [None]
  - ORAL DISORDER [None]
  - OSTEONECROSIS OF JAW [None]
  - ANAEMIA [None]
  - BREAST DISORDER [None]
  - FOOT FRACTURE [None]
  - WEIGHT DECREASED [None]
  - INSOMNIA [None]
  - RESTLESS LEGS SYNDROME [None]
  - INCORRECT DRUG ADMINISTRATION DURATION [None]
  - GASTROINTESTINAL DISORDER [None]
  - DYSPEPSIA [None]
  - STOMATITIS [None]
  - LOBAR PNEUMONIA [None]
  - MIGRAINE [None]
  - ORAL TORUS [None]
